FAERS Safety Report 7945786-4 (Version None)
Quarter: 2011Q4

REPORT INFORMATION
  Report Type: 
  Country: None (occurrence: None)
  Receive Date: 20111129
  Receipt Date: 20111117
  Transmission Date: 20120403
  Serious: Yes (Other)
  Sender: FDA-Public Use
  Company Number: GB-ROCHE-1014084

PATIENT
  Age: 33 Year
  Sex: Male
  Weight: 114 kg

DRUGS (14)
  1. CLOZARIL [Suspect]
     Indication: SCHIZOPHRENIA
     Route: 048
     Dates: start: 20100622
  2. ARIPIPRAZOLE [Concomitant]
     Route: 048
     Dates: start: 20110801
  3. FLUXETIN [Concomitant]
     Route: 048
     Dates: start: 20101101
  4. NALTREXONE HYDROCHLORIDE [Concomitant]
     Route: 048
     Dates: start: 20101101
  5. ZOPICLONE [Concomitant]
  6. DIAZEPAM [Concomitant]
     Route: 048
  7. METFORMIN HCL [Concomitant]
  8. OMEPRAZOLE [Concomitant]
  9. ZOPICLONE [Concomitant]
     Route: 048
     Dates: start: 20101101
  10. PEGASYS [Suspect]
  11. DIAZEPAM [Concomitant]
     Dates: start: 20101101
  12. PEGASYS [Suspect]
     Indication: HEPATITIS C
     Route: 058
     Dates: start: 20110715
  13. COPEGUS [Suspect]
     Indication: HEPATITIS C
     Dates: start: 20110701
  14. SCOPOLAMINE [Concomitant]
     Route: 062

REACTIONS (9)
  - NEUTROPHIL COUNT DECREASED [None]
  - PLATELET COUNT DECREASED [None]
  - LEUKOPENIA [None]
  - NEUTROPENIA [None]
  - OBESITY [None]
  - WHITE BLOOD CELL COUNT DECREASED [None]
  - OROPHARYNGEAL PAIN [None]
  - MALAISE [None]
  - HYPERHIDROSIS [None]
